FAERS Safety Report 4628727-7 (Version None)
Quarter: 2005Q2

REPORT INFORMATION
  Report Type: 
  Country: None (occurrence: None)
  Receive Date: 20050406
  Receipt Date: 20050322
  Transmission Date: 20051028
  Serious: Yes (Hospitalization)
  Sender: FDA-Public Use
  Company Number: 03-000352

PATIENT
  Age: 56 Year
  Sex: Female
  Weight: 67.1 kg

DRUGS (3)
  1. FEMHRT [Suspect]
     Indication: HORMONE REPLACEMENT THERAPY
     Dosage: 5/1000UG/QD, ORAL
     Route: 048
     Dates: start: 20000101, end: 20030709
  2. ALENDRONATE SODIUM [Concomitant]
  3. MOMETASONE FUROATE [Concomitant]

REACTIONS (2)
  - INJURY [None]
  - UTERINE CANCER [None]
